FAERS Safety Report 25064171 (Version 1)
Quarter: 2025Q1

REPORT INFORMATION
  Report Type: Spontaneous
  Country: DE (occurrence: DE)
  Receive Date: 20250311
  Receipt Date: 20250311
  Transmission Date: 20250408
  Serious: Yes (Other)
  Sender: TORRENT PHARMA INC.
  Company Number: DE-TORRENT-00028204

PATIENT
  Sex: Female

DRUGS (2)
  1. METFORMIN HYDROCHLORIDE [Suspect]
     Active Substance: METFORMIN HYDROCHLORIDE
     Indication: Insulin resistance
     Route: 065
  2. PREDNISOLONE [Concomitant]
     Active Substance: PREDNISOLONE
     Indication: Rheumatoid arthritis
     Route: 065

REACTIONS (2)
  - Drug ineffective [Unknown]
  - Diabetes mellitus [Unknown]
